FAERS Safety Report 6359053 (Version 3)
Quarter: 2013Q2

REPORT INFORMATION
  Report Type: Spontaneous
  Country: GB (occurrence: GB)
  Receive Date: 20070717
  Receipt Date: 20130425
  Transmission Date: 20140414
  Serious: Yes (Hospitalization, Other)
  Sender: FDA-Public Use
  Company Number: PHFR2006GB03770

PATIENT
  Age: 37 Year
  Sex: Male

DRUGS (19)
  1. CLOZARIL [Suspect]
     Indication: SCHIZOPHRENIA
     Dosage: 300 MG, (100 MG MANE AND 200 MG NOCTE)
     Route: 048
  2. CLOZARIL [Suspect]
     Dosage: UNK
     Dates: start: 20061205
  3. CLOZARIL [Suspect]
     Dosage: 300 MG
  4. CLOZARIL [Suspect]
     Dosage: 275 MG, UNK
     Dates: start: 20061221
  5. CLOZARIL [Suspect]
     Dosage: 100 MG, UNK
     Route: 048
     Dates: start: 200705
  6. CLOZARIL [Suspect]
     Dosage: 25 MG, (12.5 MG AT MORNING AND 12.5 AT EVENING)
     Route: 048
     Dates: start: 20081219
  7. CLOZARIL [Suspect]
     Dosage: UNK
     Dates: start: 20081219
  8. PROCYCLIDINE [Concomitant]
     Indication: EXTRAPYRAMIDAL DISORDER
     Dosage: 5 MG,
     Route: 048
     Dates: start: 20061122, end: 20061222
  9. OLANZAPINE [Concomitant]
     Dosage: UNK
     Route: 065
  10. FLUID/ELECTROLYTE REPLACEMENT THERAPY [Concomitant]
     Dosage: UNK
     Route: 065
  11. LITHIUM [Concomitant]
     Indication: AFFECTIVE DISORDER
     Dosage: 1000 MG, UNK
     Route: 048
  12. LITHIUM [Concomitant]
     Dosage: 600 MG, UNK
  13. LITHIUM [Concomitant]
     Dosage: 400 MG, UNK
  14. AMISULPRIDE [Concomitant]
     Dosage: UNK
  15. QUETIAPINE [Concomitant]
     Dosage: 700 MG, UNK
  16. DEPIXOL [Concomitant]
     Dosage: UNK
  17. CLOPIXOL [Concomitant]
     Dosage: UNK
  18. CITALOPRAM [Concomitant]
     Dosage: 20 MG, UNK
  19. VENLAFAXINE [Concomitant]
     Dosage: 150 MG, UNK

REACTIONS (40)
  - Respiratory tract infection [Recovering/Resolving]
  - Malaise [Recovering/Resolving]
  - Lethargy [Recovering/Resolving]
  - Asthenia [Recovering/Resolving]
  - Cough [Recovered/Resolved]
  - Pyrexia [Recovered/Resolved]
  - Hyperhidrosis [Recovering/Resolving]
  - Dyspnoea [Recovering/Resolving]
  - Respiratory rate increased [Recovering/Resolving]
  - Tachycardia [Recovering/Resolving]
  - Oxygen saturation decreased [Recovering/Resolving]
  - Breath sounds abnormal [Recovering/Resolving]
  - Sputum discoloured [Unknown]
  - Crepitations [Recovering/Resolving]
  - Wheezing [Recovering/Resolving]
  - C-reactive protein increased [Recovering/Resolving]
  - Bronchospasm [Unknown]
  - Influenza like illness [Recovering/Resolving]
  - Aggression [Unknown]
  - Dehydration [Unknown]
  - Renal failure acute [Unknown]
  - Renal impairment [Recovering/Resolving]
  - Blood creatinine increased [Recovering/Resolving]
  - Mental impairment [Unknown]
  - Psychiatric symptom [Unknown]
  - Hallucination, auditory [Unknown]
  - Hallucination, visual [Unknown]
  - Depressed mood [Unknown]
  - Delusion [Unknown]
  - Hypertension [Unknown]
  - Constipation [Recovering/Resolving]
  - Alanine aminotransferase increased [Recovering/Resolving]
  - Somnolence [Unknown]
  - Muscle rigidity [Unknown]
  - Vomiting [Unknown]
  - Lower respiratory tract infection [Unknown]
  - Blood creatine phosphokinase increased [Unknown]
  - Antipsychotic drug level increased [Unknown]
  - Dizziness [Unknown]
  - Headache [Unknown]
